FAERS Safety Report 17162860 (Version 1)
Quarter: 2019Q4

REPORT INFORMATION
  Report Type: Spontaneous
  Country: US (occurrence: US)
  Receive Date: 20191216
  Receipt Date: 20191216
  Transmission Date: 20200122
  Serious: Yes (Hospitalization, Other)
  Sender: FDA-Public Use
  Company Number: None

PATIENT
  Age: 71 Year
  Sex: Female

DRUGS (4)
  1. ELIQUIS [Concomitant]
     Active Substance: APIXABAN
  2. BETAMETH DIP [Concomitant]
  3. GLATIRAMER [Suspect]
     Active Substance: GLATIRAMER
     Indication: MULTIPLE SCLEROSIS
     Dosage: ?          OTHER FREQUENCY:3 TIMES A WEEK;?
     Route: 058
     Dates: start: 20191004
  4. HYDROMORPHON [Concomitant]
     Active Substance: HYDROMORPHONE

REACTIONS (2)
  - Multiple sclerosis relapse [None]
  - Therapy cessation [None]

NARRATIVE: CASE EVENT DATE: 20191204
